FAERS Safety Report 11116640 (Version 1)
Quarter: 2015Q2

REPORT INFORMATION
  Report Type: Spontaneous
  Country: US (occurrence: US)
  Receive Date: 20150515
  Receipt Date: 20150515
  Transmission Date: 20150821
  Serious: No
  Sender: FDA-Public Use
  Company Number: US-BAYER-2015-228053

PATIENT
  Age: 72 Year
  Sex: Female
  Weight: 49 kg

DRUGS (2)
  1. PEPCID [Concomitant]
     Active Substance: FAMOTIDINE
  2. CLARITIN REDITABS [Suspect]
     Active Substance: LORATADINE
     Indication: SEASONAL ALLERGY
     Dosage: 1 DF, BID
     Route: 048
     Dates: start: 20150510

REACTIONS (1)
  - Drug ineffective [None]

NARRATIVE: CASE EVENT DATE: 20150510
